FAERS Safety Report 17150467 (Version 1)
Quarter: 2019Q4

REPORT INFORMATION
  Report Type: Spontaneous
  Country: CZ (occurrence: CZ)
  Receive Date: 20191213
  Receipt Date: 20191213
  Transmission Date: 20200122
  Serious: Yes (Hospitalization)
  Sender: FDA-Public Use
  Company Number: CZ-STRIDES ARCOLAB LIMITED-2019SP012585

PATIENT
  Age: 80 Year
  Sex: Male

DRUGS (4)
  1. ACETAZOLAMIDE. [Suspect]
     Active Substance: ACETAZOLAMIDE
     Indication: OPEN ANGLE GLAUCOMA
     Dosage: UNK; PHARMACEUTICAL TABLET LONG TERM, TWO TIMES PER DAY
     Route: 048
  2. LUMIGAN [Concomitant]
     Active Substance: BIMATOPROST
     Indication: GLAUCOMA
     Dosage: UNK; ONE TIME PER DAY
     Route: 065
  3. SIMBRINZA [Concomitant]
     Active Substance: BRIMONIDINE TARTRATE\BRINZOLAMIDE
     Indication: GLAUCOMA
     Dosage: UNK; TWO TIMES PER DAY
     Route: 065
  4. POTASSIUM CHLORIDE. [Suspect]
     Active Substance: POTASSIUM CHLORIDE
     Indication: OPEN ANGLE GLAUCOMA
     Dosage: UNK; TABLET
     Route: 065

REACTIONS (4)
  - Dyspepsia [Unknown]
  - Off label use [Unknown]
  - Condition aggravated [Unknown]
  - Arrhythmia [Unknown]
